FAERS Safety Report 5298968-7 (Version None)
Quarter: 2007Q2

REPORT INFORMATION
  Report Type: 
  Country: None (occurrence: None)
  Receive Date: 20070417
  Receipt Date: 20070404
  Transmission Date: 20071010
  Serious: Yes (Other)
  Sender: FDA-Public Use
  Company Number: 2007GB00515

PATIENT
  Age: 46 Year
  Sex: Female
  Weight: 108 kg

DRUGS (6)
  1. CRESTOR [Suspect]
     Route: 048
  2. PHENOBARBITONE [Interacting]
     Indication: EPILEPSY
     Route: 048
     Dates: start: 19900101
  3. TRITACE [Interacting]
  4. CENTYL [Interacting]
     Indication: HYPERTENSION
     Route: 048
     Dates: start: 20020101
  5. DIAMICRON [Interacting]
     Indication: DIABETES MELLITUS
     Route: 048
     Dates: start: 19990101
  6. GLUCOPHAGE [Interacting]
     Indication: DIABETES MELLITUS
     Route: 048
     Dates: start: 19990101

REACTIONS (4)
  - BLOOD CHOLESTEROL INCREASED [None]
  - BLOOD TRIGLYCERIDES INCREASED [None]
  - DRUG INEFFECTIVE [None]
  - DRUG INTERACTION [None]
